FAERS Safety Report 9068788 (Version 3)
Quarter: 2013Q2

REPORT INFORMATION
  Report Type: Spontaneous
  Country: US (occurrence: US)
  Receive Date: 20130215
  Receipt Date: 20130523
  Transmission Date: 20140414
  Serious: Yes (Hospitalization, Other)
  Sender: FDA-Public Use
  Company Number: US-009507513-1301USA010145

PATIENT
  Sex: Female
  Weight: 74.38 kg

DRUGS (7)
  1. FOSAMAX [Suspect]
     Indication: OSTEOPOROSIS
     Dosage: 10 MG, QD
     Route: 048
     Dates: start: 20010731, end: 200110
  2. FOSAMAX [Suspect]
     Indication: OSTEOPOROSIS PROPHYLAXIS
     Dosage: 70 MG, QW
     Route: 048
     Dates: start: 200110, end: 20060520
  3. BONIVA [Suspect]
     Indication: OSTEOPOROSIS PROPHYLAXIS
     Dosage: 150 MG, QW
     Route: 048
     Dates: start: 20060814, end: 20091030
  4. VITAMINS (UNSPECIFIED) [Concomitant]
     Dosage: UNK
     Route: 048
     Dates: start: 2000
  5. ASCORBIC ACID [Concomitant]
     Dosage: 1000 MG, QD
     Dates: start: 2000
  6. SCHIFF MOVE FREE [Concomitant]
     Dosage: 1500MG GLUCOSAMINE/200MG CHONDROITIN
     Route: 048
     Dates: start: 2000
  7. CITRICAL [Concomitant]
     Dosage: VIT D 500IU/ CALCIUM 630 MG BID
     Route: 048
     Dates: start: 2000

REACTIONS (7)
  - Femur fracture [Unknown]
  - Vitamin D deficiency [Unknown]
  - Blood cholesterol increased [Not Recovered/Not Resolved]
  - Hypertension [Not Recovered/Not Resolved]
  - Arthritis [Unknown]
  - Orthopaedic procedure [Unknown]
  - Vascular operation [Unknown]
